FAERS Safety Report 6858572-3 (Version None)
Quarter: 2010Q3

REPORT INFORMATION
  Report Type: 
  Country: None (occurrence: None)
  Receive Date: 20100719
  Receipt Date: 20080211
  Transmission Date: 20110219
  Serious: No
  Sender: FDA-Public Use
  Company Number: US-PFIZER INC-2008013336

PATIENT
  Sex: Female
  Weight: 74.8 kg

DRUGS (2)
  1. CHANTIX [Suspect]
     Indication: SMOKING CESSATION THERAPY
     Dates: start: 20080101, end: 20080206
  2. CARDIOVASCULAR SYSTEM DRUGS [Concomitant]

REACTIONS (3)
  - GASTROENTERITIS VIRAL [None]
  - TOBACCO USER [None]
  - VOMITING [None]
